FAERS Safety Report 6257186-6 (Version None)
Quarter: 2009Q3

REPORT INFORMATION
  Report Type: 
  Country: None (occurrence: None)
  Receive Date: 20090706
  Receipt Date: 20090629
  Transmission Date: 20100115
  Serious: Yes (Other)
  Sender: FDA-Public Use
  Company Number: US-GENENTECH-285885

PATIENT
  Sex: Male

DRUGS (1)
  1. AVASTIN [Suspect]
     Indication: NEOPLASM
     Dosage: UNK
     Dates: start: 20090625

REACTIONS (3)
  - CONVULSION [None]
  - IMPAIRED HEALING [None]
  - WOUND INFECTION [None]
